FAERS Safety Report 5413437-9 (Version None)
Quarter: 2007Q3

REPORT INFORMATION
  Report Type: 
  Country: None (occurrence: None)
  Receive Date: 20070810
  Receipt Date: 20070810
  Transmission Date: 20080115
  Serious: Yes (Hospitalization)
  Sender: FDA-Public Use
  Company Number: None

PATIENT
  Age: 62 Year
  Sex: Male

DRUGS (13)
  1. AMIODARONE HCL [Suspect]
     Indication: ARRHYTHMIA
     Dosage: 400 MG PO
     Route: 048
  2. LIPITOR [Concomitant]
  3. TOPAMAX [Concomitant]
  4. DIGOXIN [Concomitant]
  5. IMDUR [Concomitant]
  6. COREG [Concomitant]
  7. PROPYLTHIOURACIL [Concomitant]
  8. CLINORIL [Concomitant]
  9. SPIRONOLACTONE [Concomitant]
  10. COUMADIN INR [Concomitant]
  11. PACERONE [Concomitant]
  12. POTASSIUM CHLORIDE [Concomitant]
  13. NEXIUM [Concomitant]

REACTIONS (1)
  - HYPERTHYROIDISM [None]
